FAERS Safety Report 16575314 (Version 1)
Quarter: 2019Q3

REPORT INFORMATION
  Report Type: Spontaneous
  Country: US (occurrence: US)
  Receive Date: 20190716
  Receipt Date: 20190716
  Transmission Date: 20191004
  Serious: No
  Sender: FDA-Public Use
  Company Number: US-AMGEN INC.-USASP2019111537

PATIENT
  Age: 62 Year
  Sex: Female

DRUGS (5)
  1. DIAMOX SEQUELS [Concomitant]
     Active Substance: ACETAZOLAMIDE
  2. GABAPENTIN. [Concomitant]
     Active Substance: GABAPENTIN
     Dosage: UNK
  3. AIMOVIG [Suspect]
     Active Substance: ERENUMAB-AOOE
     Indication: PRODUCT USED FOR UNKNOWN INDICATION
     Dosage: 70 MILLIGRAM
     Route: 065
     Dates: start: 201810, end: 201902
  4. TOPAMAX [Concomitant]
     Active Substance: TOPIRAMATE
     Dosage: UNK
  5. OPRAZOLE [OMEPRAZOLE] [Concomitant]

REACTIONS (2)
  - Hallucination, visual [Recovered/Resolved]
  - Obsessive-compulsive personality disorder [Recovered/Resolved]

NARRATIVE: CASE EVENT DATE: 2018
